FAERS Safety Report 6445863-3 (Version None)
Quarter: 2009Q4

REPORT INFORMATION
  Report Type: 
  Country: None (occurrence: None)
  Receive Date: 20091119
  Receipt Date: 20091109
  Transmission Date: 20100525
  Serious: Yes (Other)
  Sender: FDA-Public Use
  Company Number: DE-PFIZER INC-2009296601

PATIENT
  Age: 73 Year

DRUGS (1)
  1. CLINDAMYCIN HCL [Suspect]
     Dosage: 300 MG, 3X/DAY
     Route: 048

REACTIONS (1)
  - VASCULITIS [None]
